FAERS Safety Report 9518419 (Version 3)
Quarter: 2013Q3

REPORT INFORMATION
  Report Type: Spontaneous
  Country: US (occurrence: None)
  Receive Date: 20130910
  Receipt Date: 20130920
  Transmission Date: 20140515
  Serious: Yes (Death, Hospitalization)
  Sender: FDA-Public Use
  Company Number: 151004

PATIENT
  Sex: Male
  Weight: 92 kg

DRUGS (3)
  1. CYTARABINE [Suspect]
     Indication: ACUTE MYELOID LEUKAEMIA
     Dosage: 1491MG (213MG IV STARTING 8/06/2013 X 7 DAYS
     Route: 042
     Dates: start: 20130806, end: 20130812
  2. DAUNORUBICIN (384MG) [Concomitant]
     Dosage: 100MG/M2 LAST DOSE 8/12/2013
  3. DAUNORUBICIN [Concomitant]

REACTIONS (19)
  - Respiratory failure [None]
  - Hyponatraemia [None]
  - Blood bilirubin increased [None]
  - Blood creatinine increased [None]
  - Neutrophil count decreased [None]
  - Platelet count decreased [None]
  - White blood cell count decreased [None]
  - Lung infection [None]
  - Sepsis [None]
  - Ventricular tachycardia [None]
  - Anaemia [None]
  - Pneumonia [None]
  - Hypoxia [None]
  - Pancytopenia [None]
  - Hiccups [None]
  - Atrial fibrillation [None]
  - Staphylococcal infection [None]
  - Culture positive [None]
  - Renal failure acute [None]
